FAERS Safety Report 7001765 (Version 3)
Quarter: 2014Q4

REPORT INFORMATION
  Report Type: Report from Study
  Country: JP (occurrence: JP)
  Receive Date: 20090526
  Receipt Date: 20141120
  Transmission Date: 20150529
  Serious: Yes (Death, Hospitalization, Other)
  Sender: FDA-Public Use
  Company Number: PHHY2009JP13649

PATIENT
  Age: 66 Year
  Sex: Female
  Weight: 42 kg

DRUGS (9)
  1. ICL670A [Suspect]
     Active Substance: DEFERASIROX
     Indication: IRON OVERLOAD
     Dosage: 500 MG, QD
     Route: 048
     Dates: start: 20080929, end: 20081010
  2. METHYCOBAL [Concomitant]
     Active Substance: METHYLCOBALAMIN
     Indication: MYELODYSPLASTIC SYNDROME
     Dosage: 2 DF, OT
     Route: 048
     Dates: start: 20080929
  3. ICL670A [Suspect]
     Active Substance: DEFERASIROX
     Indication: MYELODYSPLASTIC SYNDROME
     Dosage: 800 MG, QD
     Route: 065
     Dates: start: 20080901
  4. ALLOPURINOL. [Concomitant]
     Active Substance: ALLOPURINOL
     Indication: MYELODYSPLASTIC SYNDROME
     Dosage: 3 DF, OT
     Route: 048
     Dates: start: 20080929
  5. ZYLORIC [Concomitant]
     Active Substance: ALLOPURINOL
     Indication: MYELODYSPLASTIC SYNDROME
     Dosage: 3 DF, OT
     Route: 048
     Dates: start: 20080929
  6. STARASID [Concomitant]
     Indication: MYELODYSPLASTIC SYNDROME
     Dosage: 1 DF, OT
     Route: 048
     Dates: start: 20080929
  7. TAKEPRON [Concomitant]
     Active Substance: LANSOPRAZOLE
     Indication: PROPHYLAXIS
     Dosage: 1 DF, OT
     Route: 048
     Dates: start: 20081010
  8. ICL670A [Suspect]
     Active Substance: DEFERASIROX
     Dosage: 125 MG, QD
     Route: 048
     Dates: start: 20090323
  9. PANALDINE [Concomitant]
     Active Substance: TICLOPIDINE HYDROCHLORIDE
     Indication: MYELODYSPLASTIC SYNDROME
     Dosage: 2 DF, OT
     Route: 048
     Dates: start: 20080929

REACTIONS (8)
  - Death [Fatal]
  - Road traffic accident [Recovering/Resolving]
  - Serum ferritin increased [Unknown]
  - Fracture [Recovering/Resolving]
  - Blood creatinine increased [Recovering/Resolving]
  - Gamma-glutamyltransferase increased [Recovered/Resolved]
  - Gastrointestinal haemorrhage [Recovered/Resolved]
  - Blood urea increased [Recovering/Resolving]

NARRATIVE: CASE EVENT DATE: 20081010
